FAERS Safety Report 17146723 (Version 1)
Quarter: 2019Q4

REPORT INFORMATION
  Report Type: Spontaneous
  Country: US (occurrence: US)
  Receive Date: 20191212
  Receipt Date: 20191212
  Transmission Date: 20200122
  Serious: Yes (Other)
  Sender: FDA-Public Use
  Company Number: US-MYLANLABS-2019M1119356

PATIENT
  Age: 72 Year
  Sex: Female
  Weight: 66 kg

DRUGS (1)
  1. ALPRAZOLAM TABLETS, USP [Suspect]
     Active Substance: ALPRAZOLAM
     Indication: ANXIETY
     Dosage: ^ONE IN THE MORNING, HALF OF TABLET BETWEEN 1-2 AND ONE AT NIGHT^
     Route: 048

REACTIONS (15)
  - Upper respiratory tract infection [Recovering/Resolving]
  - Herpes zoster [Recovered/Resolved]
  - Back pain [Not Recovered/Not Resolved]
  - Aphonia [Recovering/Resolving]
  - Dyspnoea [Recovering/Resolving]
  - Hypersensitivity [Recovered/Resolved]
  - Chest pain [Recovering/Resolving]
  - Nasopharyngitis [Recovering/Resolving]
  - Fatigue [Recovering/Resolving]
  - Recalled product administered [Unknown]
  - Respiratory tract congestion [Not Recovered/Not Resolved]
  - Asthenia [Recovering/Resolving]
  - Miliaria [Recovered/Resolved]
  - Rales [Recovering/Resolving]
  - Cough [Not Recovered/Not Resolved]

NARRATIVE: CASE EVENT DATE: 201907
